FAERS Safety Report 5327254-1 (Version None)
Quarter: 2007Q2

REPORT INFORMATION
  Report Type: 
  Country: None (occurrence: None)
  Receive Date: 20070517
  Receipt Date: 20070507
  Transmission Date: 20071010
  Serious: Yes (Hospitalization)
  Sender: FDA-Public Use
  Company Number: CH-ROCHE-496519

PATIENT
  Age: 77 Year
  Sex: Female
  Weight: 64 kg

DRUGS (21)
  1. TORSEMIDE [Suspect]
     Indication: LEFT VENTRICULAR FAILURE
     Route: 048
     Dates: start: 20070209, end: 20070212
  2. TORSEMIDE [Suspect]
     Route: 048
  3. ROCEPHIN [Suspect]
     Route: 042
     Dates: start: 20070205, end: 20070212
  4. KLACID [Suspect]
     Dosage: FORM: COATED TABLETS, FILM.
     Route: 048
     Dates: start: 20070205, end: 20070208
  5. PANTOZOL [Suspect]
     Indication: DRUG USE FOR UNKNOWN INDICATION
     Dosage: START DATE REPORTED AS FEBRUARY 2007.
     Route: 048
     Dates: end: 20070212
  6. PANTOZOL [Suspect]
     Route: 048
  7. ASPIRIN [Suspect]
     Indication: DRUG USE FOR UNKNOWN INDICATION
     Dosage: FORM: COATED TABLETS, FILM.
     Route: 048
     Dates: start: 20070212, end: 20070201
  8. ASPIRIN [Suspect]
     Route: 048
  9. ELTROXIN [Concomitant]
     Route: 048
  10. RECORMON [Concomitant]
     Dosage: FORM. VIALS.
     Route: 051
  11. CALCIUM CHLORIDE [Concomitant]
     Route: 048
  12. VITAMIN D3 [Concomitant]
     Dosage: TRADE NAME REPORTED AS VITAMIN D3 STREULI.
     Route: 048
  13. TAMOXIFEN CITRATE [Concomitant]
     Route: 048
     Dates: start: 20020101
  14. ATROVENT [Concomitant]
     Dosage: ROUTE REPORTED AS RESPIRATORY (INH.).
     Route: 055
  15. VENTOLIN [Concomitant]
     Dosage: ROUTE REPORTED AS RESPIRATORY (INH.).
     Route: 055
  16. NORVASC [Concomitant]
     Route: 048
  17. MOTILIUM [Concomitant]
     Dosage: FORM: COATED TABLETS, FILM.
     Route: 048
  18. DEROXAT [Concomitant]
     Route: 048
  19. TEMESTA [Concomitant]
     Route: 048
  20. MAGNESIUM SULFATE [Concomitant]
     Route: 048
  21. SOLU-MEDROL [Concomitant]

REACTIONS (1)
  - THROMBOCYTOPENIA [None]
